FAERS Safety Report 8902600 (Version 2)
Quarter: 2012Q4

REPORT INFORMATION
  Report Type: 
  Country: ES (occurrence: ES)
  Receive Date: 20121112
  Receipt Date: 20121115
  Transmission Date: 20130627
  Serious: Yes (Hospitalization)
  Sender: FDA-Public Use
  Company Number: ES-MERCK-1211ESP003723

PATIENT
  Age: 72 Year
  Sex: Female

DRUGS (6)
  1. FORTZAAR 100 MG/25 MG, COMPRIM? PELLICUL? [Suspect]
     Indication: HYPERTENSION
     Dosage: 1 DF, Once
     Route: 048
     Dates: start: 20120201, end: 20120412
  2. SIMVASTATIN [Concomitant]
     Indication: DYSLIPIDAEMIA
     Dosage: 10 mg, Once
     Route: 048
     Dates: start: 2008, end: 20120412
  3. ADIRO [Concomitant]
     Indication: PROPHYLAXIS
     Dosage: 100 mg, Once
     Route: 048
     Dates: start: 2009, end: 20120412
  4. AMLODIPINE [Concomitant]
     Indication: HYPERTENSION
     Route: 048
     Dates: start: 2009, end: 20120412
  5. CONDRO SAN [Concomitant]
     Indication: OSTEOARTHRITIS
     Dosage: 400 mg, Once
     Route: 048
     Dates: start: 1998, end: 20120412
  6. LEVOTHROID TABLETS [Concomitant]
     Indication: HYPOTHYROIDISM
     Dosage: 50 (once)
     Route: 048
     Dates: start: 1998, end: 20120412

REACTIONS (1)
  - Thrombotic thrombocytopenic purpura [Recovered/Resolved]
